FAERS Safety Report 26132209 (Version 1)
Quarter: 2025Q4

REPORT INFORMATION
  Report Type: Spontaneous
  Country: CN (occurrence: CN)
  Receive Date: 20251208
  Receipt Date: 20251208
  Transmission Date: 20260118
  Serious: Yes (Other)
  Sender: NOVARTIS
  Company Number: CN-002147023-NVSC2025CN187041

PATIENT
  Age: 71 Year
  Sex: Male
  Weight: 95 kg

DRUGS (1)
  1. ENTRESTO [Suspect]
     Active Substance: SACUBITRIL\VALSARTAN
     Indication: Essential hypertension
     Dosage: 200 MG, QD
     Route: 048
     Dates: start: 20251124, end: 20251125

REACTIONS (6)
  - Blood pressure increased [Recovering/Resolving]
  - Palpitations [Recovered/Resolved]
  - Asthenia [Recovered/Resolved]
  - Hyperhidrosis [Recovered/Resolved]
  - Cardiomegaly [Unknown]
  - Fatigue [Unknown]

NARRATIVE: CASE EVENT DATE: 20251125
